FAERS Safety Report 12632084 (Version 2)
Quarter: 2016Q3

REPORT INFORMATION
  Report Type: Spontaneous
  Country: US (occurrence: US)
  Receive Date: 20160808
  Receipt Date: 20160808
  Transmission Date: 20161109
  Serious: No
  Sender: FDA-Public Use
  Company Number: US-BEH-2016061860

PATIENT
  Age: 60 Year
  Sex: Female
  Weight: 114 kg

DRUGS (16)
  1. HIZENTRA [Suspect]
     Active Substance: HUMAN IMMUNOGLOBULIN G
     Indication: IMMUNODEFICIENCY COMMON VARIABLE
     Route: 058
     Dates: start: 20110316
  2. CYANOCOBALMIN [Concomitant]
     Active Substance: CYANOCOBALAMIN
  3. MAGNESIUM [Concomitant]
     Active Substance: MAGNESIUM
  4. ROPINIROLE. [Concomitant]
     Active Substance: ROPINIROLE
  5. DIPHENHYDRAMINE. [Concomitant]
     Active Substance: DIPHENHYDRAMINE
  6. MULTIVITAMIN [Concomitant]
     Active Substance: VITAMINS
  7. IRON [Concomitant]
     Active Substance: IRON
  8. HIZENTRA [Suspect]
     Active Substance: HUMAN IMMUNOGLOBULIN G
     Indication: BRAIN NEOPLASM BENIGN
     Route: 058
     Dates: start: 20110316
  9. GABAPENTIN. [Concomitant]
     Active Substance: GABAPENTIN
  10. EPIPEN [Concomitant]
     Active Substance: EPINEPHRINE
  11. TYLENEOL [Concomitant]
  12. DULOXETINE. [Concomitant]
     Active Substance: DULOXETINE
  13. FLONASE [Concomitant]
     Active Substance: FLUTICASONE PROPIONATE
  14. GENTEAL MILD [Concomitant]
     Active Substance: HYPROMELLOSE 2910 (4000 MPA.S)
  15. ALENDRONATE [Concomitant]
     Active Substance: ALENDRONATE SODIUM
  16. BENADRYL [Concomitant]
     Active Substance: DIPHENHYDRAMINE HYDROCHLORIDE

REACTIONS (1)
  - Nasopharyngitis [Unknown]

NARRATIVE: CASE EVENT DATE: 201602
